FAERS Safety Report 15016051 (Version 2)
Quarter: 2018Q2

REPORT INFORMATION
  Report Type: Spontaneous
  Country: KR (occurrence: KR)
  Receive Date: 20180615
  Receipt Date: 20180625
  Transmission Date: 20180711
  Serious: Yes (Other)
  Sender: FDA-Public Use
  Company Number: KR-BAYER-2018-108722

PATIENT
  Age: 64 Year
  Sex: Female

DRUGS (2)
  1. STIVARGA [Suspect]
     Active Substance: REGORAFENIB
     Indication: HEPATOCELLULAR CARCINOMA
     Dosage: UNK
     Dates: start: 201804
  2. NEXAVAR [Suspect]
     Active Substance: SORAFENIB
     Indication: HEPATOCELLULAR CARCINOMA
     Dosage: UNK
     Dates: start: 201609, end: 201706

REACTIONS (4)
  - Hepatocellular carcinoma [None]
  - Protein induced by vitamin K absence or antagonist II increased [None]
  - Pulmonary mass [Recovering/Resolving]
  - Alpha 1 foetoprotein abnormal [None]

NARRATIVE: CASE EVENT DATE: 201706
